FAERS Safety Report 10040766 (Version 2)
Quarter: 2014Q2

REPORT INFORMATION
  Report Type: Report from Study
  Country: US (occurrence: US)
  Receive Date: 20140327
  Receipt Date: 20140402
  Transmission Date: 20141212
  Serious: Yes (Hospitalization)
  Sender: FDA-Public Use
  Company Number: US-JNJFOC-20140313366

PATIENT
  Age: 16 Year
  Sex: Male
  Weight: 119.6 kg

DRUGS (8)
  1. REMICADE [Suspect]
     Indication: INFLAMMATORY BOWEL DISEASE
     Route: 042
     Dates: start: 20060110
  2. BUDESONIDE [Concomitant]
     Route: 065
  3. FLUTICASONE [Concomitant]
     Route: 048
  4. SINGULAIR [Concomitant]
     Route: 065
  5. FERROUS SULPHATE [Concomitant]
     Route: 065
  6. PROBIOTICS [Concomitant]
     Route: 065
  7. VITAMIN D [Concomitant]
     Route: 065
  8. MIRTAZAPINE [Concomitant]
     Route: 065

REACTIONS (1)
  - Enteritis [Recovered/Resolved]
